FAERS Safety Report 9504099 (Version 4)
Quarter: 2013Q4

REPORT INFORMATION
  Report Type: Spontaneous
  Country: CA (occurrence: CA)
  Receive Date: 20130906
  Receipt Date: 20131101
  Transmission Date: 20140711
  Serious: Yes (Hospitalization)
  Sender: FDA-Public Use
  Company Number: CA-AMGEN-CANSP2013062480

PATIENT
  Age: 76 Year
  Sex: Female

DRUGS (18)
  1. ENBREL [Suspect]
     Indication: RHEUMATOID ARTHRITIS
     Dosage: 50 MG, QWK
     Route: 058
     Dates: start: 20130819, end: 20130819
  2. ASA [Concomitant]
     Dosage: UNK
  3. CALCIUM CARBONATE [Concomitant]
     Dosage: UNK
  4. CITALOPRAM [Concomitant]
     Dosage: UNK
  5. FERROUS SULFATE [Concomitant]
     Dosage: UNK
  6. FOLIC ACID [Concomitant]
     Dosage: UNK
  7. LANSOPRAZOLE [Concomitant]
     Dosage: UNK
  8. LEFLUNOMIDE [Concomitant]
     Dosage: UNK
  9. OXYBUTIN [Concomitant]
     Dosage: UNK
  10. PREDNISONE [Concomitant]
     Dosage: UNK
  11. RISEDRONATE [Concomitant]
     Dosage: UNK UNK, QWK
  12. VITAMIN D                          /00107901/ [Concomitant]
     Dosage: UNK
  13. ZINC [Concomitant]
     Dosage: UNK
  14. VITAMIN C                          /00008001/ [Concomitant]
     Dosage: UNK
  15. VITAMIN B12                        /00056201/ [Concomitant]
     Dosage: UNK
  16. FERROUS GLUCONATE [Concomitant]
     Dosage: UNK
  17. OLMETEC [Concomitant]
     Dosage: UNK
  18. HYDROCHLOROTHIAZIDE [Concomitant]
     Dosage: UNK

REACTIONS (10)
  - Gastrointestinal disorder [Not Recovered/Not Resolved]
  - Cholelithiasis [Unknown]
  - Vital functions abnormal [Recovered/Resolved]
  - Vomiting [Recovered/Resolved]
  - Dehydration [Recovered/Resolved]
  - Blood pressure increased [Recovered/Resolved]
  - Local swelling [Recovered/Resolved]
  - Sepsis [Recovered/Resolved]
  - Urinary tract infection [Recovered/Resolved]
  - Liver function test abnormal [Not Recovered/Not Resolved]
